FAERS Safety Report 4428418-1 (Version None)
Quarter: 2004Q3

REPORT INFORMATION
  Report Type: 
  Country: None (occurrence: None)
  Receive Date: 20040816
  Receipt Date: 20040802
  Transmission Date: 20050211
  Serious: Yes (Other)
  Sender: FDA-Public Use
  Company Number: 2004052024

PATIENT
  Age: 37 Year
  Sex: Female
  Weight: 68.0396 kg

DRUGS (1)
  1. VISINE II EYE DROPS [Suspect]
     Indication: EYE REDNESS
     Dosage: ONCE, OPHTHALMIC
     Route: 047
     Dates: start: 20040802, end: 20040802

REACTIONS (3)
  - CHEMICAL BURNS OF EYE [None]
  - CONJUNCTIVITIS [None]
  - PAROSMIA [None]
